FAERS Safety Report 9077334 (Version 1)
Quarter: 2013Q1

REPORT INFORMATION
  Report Type: Report from Study
  Country: US (occurrence: US)
  Receive Date: 20130129
  Receipt Date: 20130129
  Transmission Date: 20140127
  Serious: No
  Sender: FDA-Public Use
  Company Number: US-ABBOTT-12P-163-0946279-00

PATIENT
  Age: 42 Year
  Sex: Male

DRUGS (7)
  1. HUMIRA 40 MG/0.8 ML PEN [Suspect]
     Indication: PSORIATIC ARTHROPATHY
     Dates: start: 2011
  2. ATENOLOL [Concomitant]
     Indication: HYPERTENSION
     Dosage: 25MG DAILY
  3. TRAMADOL [Concomitant]
     Indication: PAIN
     Dosage: 50MG 2 TABLETS AS NEEDED
  4. ETODOLAC [Concomitant]
     Indication: INFLAMMATION
     Dosage: 400MG 1 TAB IN AM AND 1 TAB IN PM
  5. ETODOLAC [Concomitant]
     Indication: MIGRAINE
  6. TUMS [Concomitant]
     Indication: DYSPEPSIA
  7. COLAZEPAM [Concomitant]
     Indication: MIGRAINE

REACTIONS (3)
  - Migraine [Not Recovered/Not Resolved]
  - Back pain [Not Recovered/Not Resolved]
  - Arthritis [Not Recovered/Not Resolved]
